FAERS Safety Report 4390104-4 (Version None)
Quarter: 2004Q3

REPORT INFORMATION
  Report Type: 
  Country: None (occurrence: None)
  Receive Date: 20040706
  Receipt Date: 20031217
  Transmission Date: 20050211
  Serious: Yes (Death)
  Sender: FDA-Public Use
  Company Number: JP-MERCK-0312USA02143

PATIENT
  Age: 71 Year
  Sex: Male

DRUGS (3)
  1. CIPROXAN [Suspect]
     Route: 042
     Dates: start: 20031209
  2. PEPCID [Suspect]
     Route: 042
     Dates: start: 20031110
  3. MIRACLID [Concomitant]
     Route: 042
     Dates: start: 20031110

REACTIONS (1)
  - THROMBOCYTOPENIA [None]
